FAERS Safety Report 17229949 (Version 2)
Quarter: 2020Q1

REPORT INFORMATION
  Report Type: Spontaneous
  Country: CN (occurrence: CN)
  Receive Date: 20200103
  Receipt Date: 20200113
  Transmission Date: 20200409
  Serious: Yes (Death, Other)
  Sender: FDA-Public Use
  Company Number: CN-ROCHE-2512992

PATIENT
  Age: 70 Year
  Sex: Male
  Weight: 55 kg

DRUGS (13)
  1. AMLODIPINE BESYLATE. [Concomitant]
     Active Substance: AMLODIPINE BESYLATE
     Indication: HYPERTENSION
  2. DOCETAXEL. [Concomitant]
     Active Substance: DOCETAXEL
     Indication: LUNG ADENOCARCINOMA
     Route: 065
     Dates: start: 20190927
  3. OSIMERTINIB. [Concomitant]
     Active Substance: OSIMERTINIB
     Indication: LUNG ADENOCARCINOMA
     Route: 065
     Dates: start: 20190920
  4. AVASTIN [Suspect]
     Active Substance: BEVACIZUMAB
     Route: 065
     Dates: start: 20191227
  5. RECOMBINANT HUMAN INSULIN [Concomitant]
     Active Substance: INSULIN HUMAN
     Indication: TYPE 2 DIABETES MELLITUS
     Dosage: 14 U IN THE MORNING AND 12 U IN THE EVENING
     Route: 058
  6. CONCENTRATED SODIUM CHLORIDE [Concomitant]
     Active Substance: SODIUM CHLORIDE
     Indication: BLOOD SODIUM DECREASED
     Route: 048
     Dates: start: 20191216
  7. PEMETREXED. [Concomitant]
     Active Substance: PEMETREXED
     Indication: LUNG ADENOCARCINOMA
     Route: 065
     Dates: start: 20191104
  8. AMBROXOL [Concomitant]
     Active Substance: AMBROXOL
     Route: 065
     Dates: start: 201912
  9. AVASTIN [Suspect]
     Active Substance: BEVACIZUMAB
     Indication: LUNG ADENOCARCINOMA
     Dosage: 100 MG
     Route: 042
     Dates: start: 20191126
  10. PEMETREXED. [Concomitant]
     Active Substance: PEMETREXED
     Route: 065
     Dates: start: 20191126
  11. PIPERACILLIN AND TAZOBACTAM [Concomitant]
     Active Substance: PIPERACILLIN SODIUM\TAZOBACTAM SODIUM
     Indication: PNEUMONIA
     Route: 065
  12. CATEQUENTINIB. [Concomitant]
     Active Substance: CATEQUENTINIB
     Indication: LUNG ADENOCARCINOMA
     Route: 048
     Dates: start: 2019, end: 2019
  13. ACARBOSE. [Concomitant]
     Active Substance: ACARBOSE
     Indication: DIABETES MELLITUS
     Route: 065

REACTIONS (9)
  - Weight decreased [Unknown]
  - Neutrophil count increased [Unknown]
  - Renal impairment [Unknown]
  - Hypoproteinaemia [Unknown]
  - Rhinitis atrophic [Unknown]
  - Hepatic function abnormal [Unknown]
  - Pulmonary embolism [Fatal]
  - White blood cell count increased [Unknown]
  - Sinus tachycardia [Unknown]

NARRATIVE: CASE EVENT DATE: 201912
